FAERS Safety Report 15761781 (Version 2)
Quarter: 2019Q1

REPORT INFORMATION
  Report Type: Spontaneous
  Country: FR (occurrence: FR)
  Receive Date: 20181226
  Receipt Date: 20190129
  Transmission Date: 20190417
  Serious: Yes (Other)
  Sender: FDA-Public Use
  Company Number: PHHY2018FR193986

PATIENT
  Age: 81 Year
  Sex: Female
  Weight: 35 kg

DRUGS (2)
  1. LAMOTRIGINE SANDOZ [Suspect]
     Active Substance: LAMOTRIGINE
     Indication: TEMPORAL LOBE EPILEPSY
     Dosage: 100 MG, QD
     Route: 048
     Dates: start: 20180531, end: 20181015
  2. RABEPRAZOLE [Concomitant]
     Active Substance: RABEPRAZOLE
     Indication: EROSIVE OESOPHAGITIS
     Dosage: 10 MG, UNK
     Route: 048
     Dates: start: 20181001

REACTIONS (12)
  - Balance disorder [Not Recovered/Not Resolved]
  - Fall [Recovering/Resolving]
  - Fatigue [Unknown]
  - Dizziness [Recovering/Resolving]
  - Tremor [Recovering/Resolving]
  - Dry eye [Recovering/Resolving]
  - Depression [Recovering/Resolving]
  - Dry mouth [Recovering/Resolving]
  - Visual acuity reduced [Unknown]
  - Subcutaneous haematoma [Recovering/Resolving]
  - Muscular weakness [Recovering/Resolving]
  - Macule [Recovering/Resolving]

NARRATIVE: CASE EVENT DATE: 20180630
